FAERS Safety Report 20026176 (Version 1)
Quarter: 2021Q4

REPORT INFORMATION
  Report Type: Spontaneous
  Country: None (occurrence: US)
  Receive Date: 20211102
  Receipt Date: 20211102
  Transmission Date: 20220303
  Serious: No
  Sender: FDA-Public Use
  Company Number: US-Breckenridge Pharmaceutical, Inc.-2121361

PATIENT
  Age: 82 Year
  Sex: Female
  Weight: 59.545 kg

DRUGS (1)
  1. AZELASTINE HYDROCHLORIDE [Suspect]
     Active Substance: AZELASTINE HYDROCHLORIDE
     Route: 045
     Dates: start: 20210908, end: 20210909

REACTIONS (2)
  - Pruritus [Unknown]
  - Burning sensation [Unknown]
